FAERS Safety Report 7767966-3 (Version None)
Quarter: 2011Q3

REPORT INFORMATION
  Report Type: 
  Country: None (occurrence: None)
  Receive Date: 20110922
  Receipt Date: 20110301
  Transmission Date: 20111222
  Serious: Yes (Other)
  Sender: FDA-Public Use
  Company Number: US-ASTRAZENECA-2010SE12695

PATIENT
  Sex: Female

DRUGS (5)
  1. ZOLPIDEM [Concomitant]
     Dates: start: 20070803
  2. ALPRAZOLAM [Concomitant]
     Dates: start: 20070803
  3. BENZTROPINE MES [Concomitant]
     Dates: start: 20070803
  4. SEROQUEL [Suspect]
     Dosage: 100-300 MG
     Route: 048
     Dates: start: 20070726
  5. SERTRALINE HYDROCHLORIDE [Concomitant]
     Dates: start: 20070803

REACTIONS (3)
  - PANCREATITIS [None]
  - TYPE 2 DIABETES MELLITUS [None]
  - DIABETIC COMA [None]
